FAERS Safety Report 9322585 (Version 1)
Quarter: 2013Q2

REPORT INFORMATION
  Report Type: Spontaneous
  Country: US (occurrence: US)
  Receive Date: 20130531
  Receipt Date: 20130531
  Transmission Date: 20140414
  Serious: No
  Sender: FDA-Public Use
  Company Number: US-ASTRAZENECA-2013SE33709

PATIENT
  Age: 72 Year
  Sex: Female
  Weight: 101.6 kg

DRUGS (3)
  1. SYMBICORT [Suspect]
     Indication: ASTHMA
     Dosage: 160/4.5 MCG, 2 PUFFS TWO TIMES A DAY
     Route: 055
  2. ATENOLOL [Suspect]
     Indication: HYPERTENSION
     Route: 048
  3. LISINOPRIL [Suspect]
     Indication: HYPERTENSION
     Dosage: DAILY
     Route: 048
     Dates: start: 2012

REACTIONS (5)
  - Weight fluctuation [Unknown]
  - Weight increased [Unknown]
  - Blood pressure increased [Unknown]
  - Hypertension [Unknown]
  - Intentional drug misuse [Unknown]
